FAERS Safety Report 13399566 (Version 1)
Quarter: 2017Q2

REPORT INFORMATION
  Report Type: Spontaneous
  Country: US (occurrence: US)
  Receive Date: 20170403
  Receipt Date: 20170403
  Transmission Date: 20170830
  Serious: Yes (Other)
  Sender: FDA-Public Use
  Company Number: None

PATIENT
  Age: 76 Year
  Sex: Female
  Weight: 56.7 kg

DRUGS (10)
  1. CITRACAL+D3 [Concomitant]
  2. CARVEDILOL. [Concomitant]
     Active Substance: CARVEDILOL
  3. OMEGA KRILL OIL [Concomitant]
  4. VITAMIN E [Concomitant]
     Active Substance: .ALPHA.-TOCOPHEROL
  5. RALOXIFENE. [Suspect]
     Active Substance: RALOXIFENE
     Indication: OSTEOPOROSIS
     Dosage: ?          QUANTITY:1 TABLET(S);?
     Route: 048
     Dates: start: 20160413, end: 20160930
  6. OCUVITE [Concomitant]
     Active Substance: VITAMINS
  7. IBANDRONATE SODIUM. [Suspect]
     Active Substance: IBANDRONATE SODIUM
     Indication: OSTEOPOROSIS
     Dosage: ?          QUANTITY:1 TABLET(S);?
     Route: 048
  8. ASA 81 [Concomitant]
     Active Substance: ASPIRIN
  9. CARVEDILOL. [Concomitant]
     Active Substance: CARVEDILOL
  10. ESTRADIOL. [Concomitant]
     Active Substance: ESTRADIOL

REACTIONS (8)
  - Pain in extremity [None]
  - Headache [None]
  - Limb discomfort [None]
  - Arthralgia [None]
  - Hot flush [None]
  - Neck pain [None]
  - Muscle spasms [None]
  - Balance disorder [None]

NARRATIVE: CASE EVENT DATE: 20160905
